FAERS Safety Report 24891661 (Version 1)
Quarter: 2025Q1

REPORT INFORMATION
  Report Type: Spontaneous
  Country: TW (occurrence: TW)
  Receive Date: 20250127
  Receipt Date: 20250127
  Transmission Date: 20250409
  Serious: Yes (Life-Threatening, Hospitalization, Other)
  Sender: PFIZER
  Company Number: TW-PFIZER INC-PV202500009161

PATIENT
  Age: 52 Year
  Sex: Male

DRUGS (3)
  1. DOPAMINE HYDROCHLORIDE [Suspect]
     Active Substance: DOPAMINE HYDROCHLORIDE
  2. VASOPRESSIN [Suspect]
     Active Substance: VASOPRESSIN
     Indication: Haematemesis
  3. VASOPRESSIN [Suspect]
     Active Substance: VASOPRESSIN

REACTIONS (2)
  - Skin necrosis [Unknown]
  - Rhabdomyolysis [Unknown]
